FAERS Safety Report 8589786-2 (Version None)
Quarter: 2012Q3

REPORT INFORMATION
  Report Type: 
  Country: None (occurrence: None)
  Receive Date: 20120813
  Receipt Date: 20120731
  Transmission Date: 20120928
  Serious: Yes (Other)
  Sender: FDA-Public Use
  Company Number: US-ROCHE-1096636

PATIENT
  Age: 21 Year
  Sex: Female
  Weight: 62.652 kg

DRUGS (1)
  1. XOLAIR [Suspect]
     Indication: PRODUCT USED FOR UNKNOWN INDICATION
     Route: 058
     Dates: start: 20110510, end: 20120720

REACTIONS (5)
  - PREGNANCY [None]
  - CHEST PAIN [None]
  - WHEEZING [None]
  - DYSPNOEA [None]
  - HEART RATE INCREASED [None]
